FAERS Safety Report 6094966-4 (Version None)
Quarter: 2009Q1

REPORT INFORMATION
  Report Type: 
  Country: None (occurrence: None)
  Receive Date: 20090227
  Receipt Date: 20090217
  Transmission Date: 20090719
  Serious: Yes (Life-Threatening, Hospitalization)
  Sender: FDA-Public Use
  Company Number: DE-PFIZER INC-2008154222

PATIENT

DRUGS (2)
  1. DEPO-CLINOVIR [Suspect]
     Indication: OFF LABEL USE
     Dosage: 150 MG, EVERY 3 MONTHS
     Route: 030
     Dates: start: 20081105
  2. DEPO-CLINOVIR [Suspect]
     Indication: MENORRHAGIA

REACTIONS (1)
  - HEPATITIS FULMINANT [None]
